FAERS Safety Report 8472331-X (Version None)
Quarter: 2012Q2

REPORT INFORMATION
  Report Type: 
  Country: None (occurrence: None)
  Receive Date: 20120627
  Receipt Date: 20120618
  Transmission Date: 20120825
  Serious: Yes (Other)
  Sender: FDA-Public Use
  Company Number: US-ASTRAZENECA-2012SE40682

PATIENT
  Sex: Female

DRUGS (3)
  1. FENOFIBRATE [Concomitant]
  2. CRESTOR [Suspect]
     Route: 048
  3. LOVAZA [Concomitant]

REACTIONS (2)
  - MYOPATHY [None]
  - RHABDOMYOLYSIS [None]
